FAERS Safety Report 8550107-2 (Version None)
Quarter: 2012Q3

REPORT INFORMATION
  Report Type: 
  Country: None (occurrence: None)
  Receive Date: 20120730
  Receipt Date: 20120719
  Transmission Date: 20120928
  Serious: Yes (Other)
  Sender: FDA-Public Use
  Company Number: US-ASTRAZENECA-2012SE26616

PATIENT
  Age: 53 Year
  Sex: Male

DRUGS (1)
  1. SEROQUEL [Suspect]
     Route: 048

REACTIONS (4)
  - ACCIDENT [None]
  - FALL [None]
  - DRUG DOSE OMISSION [None]
  - ABNORMAL BEHAVIOUR [None]
